FAERS Safety Report 6368640-0 (Version None)
Quarter: 2009Q3

REPORT INFORMATION
  Report Type: 
  Country: None (occurrence: None)
  Receive Date: 20090922
  Receipt Date: 20090909
  Transmission Date: 20100115
  Serious: Yes (Life-Threatening)
  Sender: FDA-Public Use
  Company Number: JP-PFIZER INC-2009245158

PATIENT
  Age: 73 Year

DRUGS (2)
  1. SUNITINIB MALATE [Suspect]
     Indication: RENAL CELL CARCINOMA
     Dosage: 50 MG, 1X/DAY
     Route: 048
     Dates: start: 20090512
  2. WARFARIN POTASSIUM [Concomitant]
     Route: 048
     Dates: end: 20090520

REACTIONS (2)
  - CHOLECYSTITIS ACUTE [None]
  - THROMBOCYTOPENIA [None]
